FAERS Safety Report 7288339-6 (Version None)
Quarter: 2011Q1

REPORT INFORMATION
  Report Type: 
  Country: None (occurrence: None)
  Receive Date: 20110211
  Receipt Date: 20110208
  Transmission Date: 20110831
  Serious: Yes (Other)
  Sender: FDA-Public Use
  Company Number: US-PFIZER INC-2011028583

PATIENT
  Sex: Female

DRUGS (2)
  1. RITALIN [Concomitant]
  2. EFFEXOR XR [Suspect]
     Indication: DEPRESSION
     Dosage: UNK
     Route: 048
     Dates: start: 20040101, end: 20110101

REACTIONS (3)
  - BEDRIDDEN [None]
  - HEADACHE [None]
  - WITHDRAWAL SYNDROME [None]
